FAERS Safety Report 10794705 (Version 2)
Quarter: 2015Q1

REPORT INFORMATION
  Report Type: Spontaneous
  Country: US (occurrence: US)
  Receive Date: 20150213
  Receipt Date: 20150213
  Transmission Date: 20150721
  Serious: Yes (Hospitalization)
  Sender: FDA-Public Use
  Company Number: US-EISAI MEDICAL RESEARCH-EC-2015-003823

PATIENT
  Sex: Female

DRUGS (8)
  1. HALOPERIDOL. [Interacting]
     Active Substance: HALOPERIDOL
     Route: 048
  2. BENZTROPINE [Suspect]
     Active Substance: BENZTROPINE
     Route: 065
  3. BENZTROPINE [Suspect]
     Active Substance: BENZTROPINE
     Route: 065
  4. FLUVOXAMINE [Concomitant]
     Active Substance: FLUVOXAMINE
     Indication: OBSESSIVE-COMPULSIVE DISORDER
     Route: 065
  5. DONEPEZIL [Suspect]
     Active Substance: DONEPEZIL
     Indication: DEMENTIA
     Route: 048
  6. BENZTROPINE [Suspect]
     Active Substance: BENZTROPINE
     Indication: PRODUCT USED FOR UNKNOWN INDICATION
     Route: 065
  7. HALOPERIDOL. [Interacting]
     Active Substance: HALOPERIDOL
     Indication: SCHIZOPHRENIA
     Route: 030
  8. HALOPERIDOL. [Interacting]
     Active Substance: HALOPERIDOL
     Dosage: DOSE TAPERED (UNSPECIFIED)
     Route: 048

REACTIONS (2)
  - Neuroleptic malignant syndrome [Recovered/Resolved]
  - Drug interaction [Recovered/Resolved]
